FAERS Safety Report 10064377 (Version 1)
Quarter: 2014Q2

REPORT INFORMATION
  Report Type: Spontaneous
  Country: US (occurrence: None)
  Receive Date: 20140407
  Receipt Date: 20140407
  Transmission Date: 20141212
  Serious: Yes (Other)
  Sender: FDA-Public Use
  Company Number: None

PATIENT
  Sex: 0

DRUGS (2)
  1. CHLORAPREP 2% CHLORHEXIDINE GLUCONATE [Suspect]
     Indication: PREOPERATIVE CARE
     Dosage: SINGLE USE APPLIED TO A SURFACE, USUALLY THE SKIN
     Dates: start: 20140402, end: 20140402
  2. CHLORAPREP 2% CHLORHEXIDINE GLUCONATE [Suspect]
     Indication: BLOOD TEST
     Dosage: SINGLE USE APPLIED TO A SURFACE, USUALLY THE SKIN
     Dates: start: 20140402, end: 20140402

REACTIONS (1)
  - Rash [None]
